FAERS Safety Report 9718953 (Version 1)
Quarter: 2013Q4

REPORT INFORMATION
  Report Type: Spontaneous
  Country: US (occurrence: None)
  Receive Date: 20131125
  Receipt Date: 20131125
  Transmission Date: 20140711
  Serious: Yes (Hospitalization, Other)
  Sender: FDA-Public Use
  Company Number: 001633246A

PATIENT
  Age: 54 Year
  Sex: Female

DRUGS (5)
  1. PROACTIV RENEWING CLEANSER [Suspect]
     Indication: ACNE
     Dosage: ONCE DAILY DERMAL
     Dates: start: 20131025, end: 20131113
  2. PROACTIV REPAIRING TREATMENT [Suspect]
     Dosage: ONCE DAILY DERMAL
     Dates: start: 20131025, end: 20131113
  3. PROACTIV ADVANCED DAILY OIL CONTROL [Suspect]
     Dosage: ONCE DAILY DERMAL
     Dates: start: 20131025, end: 20131113
  4. PROACTIV SPF 15 MOISTURIZER [Suspect]
     Dosage: ONCE DAILY DERMAL
  5. DAILY MULTIVITAMINS [Concomitant]

REACTIONS (5)
  - Pruritus [None]
  - Rash erythematous [None]
  - Purpura [None]
  - Swelling face [None]
  - Burning sensation [None]
